FAERS Safety Report 9937412 (Version 1)
Quarter: 2014Q1

REPORT INFORMATION
  Report Type: Spontaneous
  Country: US (occurrence: US)
  Receive Date: 20140303
  Receipt Date: 20140303
  Transmission Date: 20141002
  Serious: Yes (Hospitalization, Other)
  Sender: FDA-Public Use
  Company Number: US-009507513-1402USA013384

PATIENT
  Age: 46 Year
  Sex: Male

DRUGS (5)
  1. JANUVIA [Suspect]
     Indication: TYPE 2 DIABETES MELLITUS
     Dosage: UNK
     Route: 048
     Dates: end: 201401
  2. LANTUS [Concomitant]
     Dosage: 35 DF, BID
  3. NOVOLOG [Concomitant]
  4. GLIPIZIDE [Concomitant]
     Dosage: 5 MG, BID
  5. METFORMIN [Concomitant]
     Dosage: 1000 MG, BID

REACTIONS (2)
  - Pancreatitis [Unknown]
  - Pancreatitis [Unknown]
